FAERS Safety Report 24027312 (Version 1)
Quarter: 2024Q2

REPORT INFORMATION
  Report Type: Spontaneous
  Country: GB (occurrence: GB)
  Receive Date: 20240628
  Receipt Date: 20240628
  Transmission Date: 20240716
  Serious: Yes (Other)
  Sender: FDA-Public Use
  Company Number: GB-CELLTRION INC.-2024GB015520

PATIENT

DRUGS (1)
  1. INFLIXIMAB [Suspect]
     Active Substance: INFLIXIMAB
     Indication: Colitis ulcerative
     Dosage: REMSIMA (INFLIXIMAB) 120MG PRE FILLED PEN
     Route: 058
     Dates: start: 202403

REACTIONS (3)
  - Dementia Alzheimer^s type [Unknown]
  - Condition aggravated [Unknown]
  - Incontinence [Unknown]
